FAERS Safety Report 6139802-2 (Version None)
Quarter: 2009Q2

REPORT INFORMATION
  Report Type: 
  Country: None (occurrence: None)
  Receive Date: 20090401
  Receipt Date: 20090326
  Transmission Date: 20091009
  Serious: Yes (Hospitalization)
  Sender: FDA-Public Use
  Company Number: B0564909A

PATIENT
  Age: 90 Year
  Sex: Female

DRUGS (1)
  1. PAXIL [Suspect]
     Indication: DEPRESSION
     Dosage: 20MG PER DAY
     Route: 048
     Dates: start: 20081001, end: 20090311

REACTIONS (4)
  - CONVULSION [None]
  - DELIRIUM [None]
  - SEROTONIN SYNDROME [None]
  - TREMOR [None]
